FAERS Safety Report 19167920 (Version 5)
Quarter: 2021Q2

REPORT INFORMATION
  Report Type: Report from Study
  Country: ES (occurrence: ES)
  Receive Date: 20210422
  Receipt Date: 20210525
  Transmission Date: 20210717
  Serious: Yes (Other)
  Sender: FDA-Public Use
  Company Number: ES-AUROBINDO-AUR-APL-2021-009630

PATIENT
  Age: 90 Year
  Sex: Female

DRUGS (5)
  1. SAFINAMIDE [Interacting]
     Active Substance: SAFINAMIDE
     Indication: PARKINSON^S DISEASE
     Dosage: 50 MILLIGRAM, ONCE A DAY
     Route: 065
  2. DULOXETINE. [Interacting]
     Active Substance: DULOXETINE
     Indication: ANTIDEPRESSANT THERAPY
  3. DULOXETINE. [Interacting]
     Active Substance: DULOXETINE
     Indication: PARKINSON^S DISEASE
  4. TRAMADOL. [Suspect]
     Active Substance: TRAMADOL
     Indication: PRODUCT USED FOR UNKNOWN INDICATION
     Dosage: 37.5 MILLIGRAM, ONCE A DAY
     Route: 065
  5. DULOXETINE. [Suspect]
     Active Substance: DULOXETINE
     Indication: DEPRESSION
     Dosage: 30 MILLIGRAM, ONCE A DAY
     Route: 065

REACTIONS (9)
  - Sleep disorder [Recovering/Resolving]
  - Serum serotonin increased [Recovering/Resolving]
  - Myoclonus [Recovering/Resolving]
  - Nervousness [Recovering/Resolving]
  - Product use in unapproved indication [Unknown]
  - Labelled drug-drug interaction issue [Recovering/Resolving]
  - Confusional state [Recovering/Resolving]
  - Toxicity to various agents [Recovering/Resolving]
  - Serotonin syndrome [Recovered/Resolved]
